FAERS Safety Report 7032995-4 (Version None)
Quarter: 2010Q4

REPORT INFORMATION
  Report Type: 
  Country: None (occurrence: None)
  Receive Date: 20101007
  Receipt Date: 20100930
  Transmission Date: 20110411
  Serious: Yes (Other)
  Sender: FDA-Public Use
  Company Number: US-PFIZER INC-2007032293

PATIENT
  Sex: Female
  Weight: 61.224 kg

DRUGS (3)
  1. XALATAN [Suspect]
     Indication: GLAUCOMA
     Dosage: UNK
     Route: 047
     Dates: start: 20070322, end: 20070418
  2. ACETYLSALICYLIC ACID SRT [Concomitant]
     Dosage: UNK
  3. VALSARTAN [Concomitant]
     Indication: HYPERTENSION
     Dosage: 250 MG, UNK

REACTIONS (7)
  - CATARACT [None]
  - DARK CIRCLES UNDER EYES [None]
  - EYE PRURITUS [None]
  - NERVOUSNESS [None]
  - PRURITUS [None]
  - PRURITUS GENERALISED [None]
  - VISUAL IMPAIRMENT [None]
